FAERS Safety Report 15483903 (Version 1)
Quarter: 2018Q4

REPORT INFORMATION
  Report Type: Spontaneous
  Country: US (occurrence: US)
  Receive Date: 20181010
  Receipt Date: 20181010
  Transmission Date: 20190205
  Serious: No
  Sender: FDA-Public Use
  Company Number: US-B.I. PHARMACEUTICALS,INC./RIDGEFIELD-2018-BI-048730

PATIENT
  Sex: Male

DRUGS (8)
  1. ADVAIR HFA [Concomitant]
     Active Substance: FLUTICASONE PROPIONATE\SALMETEROL XINAFOATE
     Indication: CHRONIC OBSTRUCTIVE PULMONARY DISEASE
     Dosage: FORM STRENGTH: 250/50MG
     Route: 065
  2. IRON [Concomitant]
     Active Substance: IRON
     Indication: MINERAL SUPPLEMENTATION
     Route: 065
  3. WARFARIN [Concomitant]
     Active Substance: WARFARIN
     Indication: ATRIAL FIBRILLATION
     Dosage: ONE CAPLET DAILY;  FORM STRENGTH: 5MG; FORMULATION: CAPLET
     Route: 048
  4. GLIPIZIDE. [Concomitant]
     Active Substance: GLIPIZIDE
     Indication: TYPE 2 DIABETES MELLITUS
     Dosage: ONE CAPLET DAILY;  FORM STRENGTH: 2.5MG; FORMULATION: CAPLET
     Route: 048
  5. BABY ASPIRIN [Concomitant]
     Active Substance: ASPIRIN
     Indication: PRODUCT USED FOR UNKNOWN INDICATION
     Dosage: ONE CPALET DAILY;  FORM STRENGTH: 81MG; FORMULATION: CAPLET
     Route: 065
  6. METFORMIN [Concomitant]
     Active Substance: METFORMIN HYDROCHLORIDE
     Indication: TYPE 2 DIABETES MELLITUS
     Dosage: ONE CAPLET BID;  FORM STRENGTH: 1000MG; FORMULATION: CAPLET
     Route: 048
  7. SPIRIVA [Suspect]
     Active Substance: TIOTROPIUM BROMIDE MONOHYDRATE
     Indication: CHRONIC OBSTRUCTIVE PULMONARY DISEASE
     Dosage: 2 INHALATIONS FROM ONE CAPSULE DAILY; STRENGTH: 18 MCG;  ACTION TAKEN WITH PRODUCT: DOSE NOT CHANGED
     Route: 055
     Dates: start: 2009
  8. ATORVASTATIN [Concomitant]
     Active Substance: ATORVASTATIN
     Indication: BLOOD CHOLESTEROL INCREASED
     Dosage: ONE CAPLET DAILY;  FORM STRENGTH: 10MG; FORMULATION: CAPLET
     Route: 048

REACTIONS (7)
  - Type 2 diabetes mellitus [Unknown]
  - Cough [Unknown]
  - Urinary retention [Unknown]
  - Atrial fibrillation [Unknown]
  - Dizziness [Unknown]
  - Gait disturbance [Unknown]
  - Dysstasia [Unknown]

NARRATIVE: CASE EVENT DATE: 2009
